FAERS Safety Report 7288681-9 (Version None)
Quarter: 2011Q1

REPORT INFORMATION
  Report Type: 
  Country: None (occurrence: None)
  Receive Date: 20110211
  Receipt Date: 20110207
  Transmission Date: 20110831
  Serious: Yes (Hospitalization)
  Sender: FDA-Public Use
  Company Number: CA-ABBOTT-11P-028-0703726-00

PATIENT
  Sex: Female
  Weight: 56.75 kg

DRUGS (9)
  1. HUMIRA [Suspect]
     Indication: CROHN'S DISEASE
  2. VITAMIN B-12 [Concomitant]
     Indication: VITAMIN SUPPLEMENTATION
     Route: 048
  3. PANCREASE [Concomitant]
     Indication: PANCREATIC DISORDER
     Dosage: 1 IN 1 DAY, MT 10
     Route: 048
  4. VITAMIN D [Concomitant]
     Indication: VITAMIN SUPPLEMENTATION
     Route: 048
  5. HUMIRA [Suspect]
     Indication: CROHN'S DISEASE
     Route: 058
     Dates: start: 20091202
  6. CALCIUM [Concomitant]
     Indication: MINERAL SUPPLEMENTATION
     Route: 048
  7. VENLAFAXINE HCL EXTENDED-RELEASE [Concomitant]
     Indication: CROHN'S DISEASE
     Route: 048
  8. FOLIC ACID [Concomitant]
     Indication: CROHN'S DISEASE
     Route: 048
  9. ENTOCORT EC [Concomitant]
     Indication: CROHN'S DISEASE
     Route: 048
     Dates: start: 20110114

REACTIONS (5)
  - INTESTINAL OBSTRUCTION [None]
  - RASH MACULAR [None]
  - INJECTION SITE PAIN [None]
  - CONTUSION [None]
  - INJECTION SITE HAEMORRHAGE [None]
